FAERS Safety Report 9464881 (Version 1)
Quarter: 2013Q3

REPORT INFORMATION
  Report Type: Spontaneous
  Country: BW (occurrence: BW)
  Receive Date: 20130819
  Receipt Date: 20130819
  Transmission Date: 20140515
  Serious: Yes (Death, Hospitalization, Other)
  Sender: FDA-Public Use
  Company Number: BW-B.I. PHARMACEUTICALS,INC./RIDGEFIELD-2013-BI-24521GD

PATIENT
  Age: 44 Year
  Sex: Female

DRUGS (3)
  1. VIRAMUNE [Suspect]
     Indication: HIV INFECTION
  2. COMBIVIR [Suspect]
     Indication: HIV INFECTION
  3. WARFARIN [Concomitant]
     Indication: ATRIAL THROMBOSIS

REACTIONS (10)
  - Pulmonary embolism [Fatal]
  - Hypotension [Fatal]
  - Right ventricular failure [Fatal]
  - Atrial thrombosis [Fatal]
  - Dyspnoea [Unknown]
  - Jugular vein distension [Unknown]
  - Oedema peripheral [Unknown]
  - Bundle branch block right [Unknown]
  - Cardiomegaly [Unknown]
  - Hypercoagulation [Unknown]
